FAERS Safety Report 5489235-7 (Version None)
Quarter: 2007Q4

REPORT INFORMATION
  Report Type: 
  Country: None (occurrence: None)
  Receive Date: 20071016
  Receipt Date: 20071009
  Transmission Date: 20080405
  Serious: Yes (Hospitalization)
  Sender: FDA-Public Use
  Company Number: 163-21880-07100519

PATIENT
  Sex: Male

DRUGS (2)
  1. REVLIMID [Suspect]
     Indication: MULTIPLE MYELOMA
     Dosage: 25-10MG, DAILY, ORAL; 5 MG, 1 IN 1 D, ORAL
     Route: 048
     Dates: start: 20061121, end: 20070701
  2. REVLIMID [Suspect]
     Indication: MULTIPLE MYELOMA
     Dosage: 25-10MG, DAILY, ORAL; 5 MG, 1 IN 1 D, ORAL
     Route: 048
     Dates: start: 20070727

REACTIONS (6)
  - ARRHYTHMIA [None]
  - ASTHENIA [None]
  - IMMUNE SYSTEM DISORDER [None]
  - NASOPHARYNGITIS [None]
  - PNEUMONIA [None]
  - PYREXIA [None]
